FAERS Safety Report 23796265 (Version 1)
Quarter: 2024Q2

REPORT INFORMATION
  Report Type: Spontaneous
  Country: JO (occurrence: JO)
  Receive Date: 20240430
  Receipt Date: 20240430
  Transmission Date: 20240715
  Serious: Yes (Hospitalization)
  Sender: FDA-Public Use
  Company Number: JO-NOVITIUMPHARMA-2024JONVP00642

PATIENT
  Age: 47 Year
  Sex: Male

DRUGS (5)
  1. DEXAMETHASONE [Suspect]
     Active Substance: DEXAMETHASONE
     Indication: Pneumonia klebsiella
  2. VANCOMYCIN [Concomitant]
     Active Substance: VANCOMYCIN
     Indication: Pneumonia klebsiella
  3. AMIKACIN [Concomitant]
     Active Substance: AMIKACIN
     Indication: Pneumonia klebsiella
  4. COLISTIN [Concomitant]
     Active Substance: COLISTIN
     Indication: Pneumonia klebsiella
  5. MEROPENEM [Concomitant]
     Active Substance: MEROPENEM
     Indication: Pneumonia klebsiella

REACTIONS (1)
  - Candida infection [Recovering/Resolving]
